FAERS Safety Report 10412558 (Version 1)
Quarter: 2014Q3

REPORT INFORMATION
  Report Type: Spontaneous
  Country: US (occurrence: None)
  Receive Date: 20140822
  Receipt Date: 20140822
  Transmission Date: 20150326
  Serious: Yes (Death)
  Sender: FDA-Public Use
  Company Number: US-H14001-14-00414

PATIENT
  Sex: Female

DRUGS (1)
  1. MORPHINE (MORPHINE SULFATE) [Suspect]
     Active Substance: MORPHINE SULFATE
     Indication: PRODUCT USED FOR UNKNOWN INDICATION
     Dosage: NOT OTHERWISE SPECIFIED
     Route: 042

REACTIONS (1)
  - Skin discolouration [None]
